FAERS Safety Report 13652423 (Version 1)
Quarter: 2017Q2

REPORT INFORMATION
  Report Type: Spontaneous
  Country: US (occurrence: US)
  Receive Date: 20170614
  Receipt Date: 20170614
  Transmission Date: 20170830
  Serious: No
  Sender: FDA-Public Use
  Company Number: US-ROCHE-1291472

PATIENT
  Sex: Female

DRUGS (4)
  1. XELODA [Suspect]
     Active Substance: CAPECITABINE
     Dosage: 1000 MG IN MORNING AND 500 MG IN EVENING, 14 DAYS ON AND 7 DAYS OFF
     Route: 048
     Dates: start: 20140111
  2. XELODA [Suspect]
     Active Substance: CAPECITABINE
     Indication: COLON CANCER
     Dosage: 2 TABS IN MORNING AND 1 IN THE EVENING
     Route: 048
     Dates: start: 20130122
  3. LISINOPRIL. [Concomitant]
     Active Substance: LISINOPRIL
  4. NEURONTIN [Concomitant]
     Active Substance: GABAPENTIN

REACTIONS (2)
  - Hypoaesthesia [Not Recovered/Not Resolved]
  - Palmar-plantar erythrodysaesthesia syndrome [Not Recovered/Not Resolved]
